FAERS Safety Report 7993897-X (Version None)
Quarter: 2011Q4

REPORT INFORMATION
  Report Type: 
  Country: None (occurrence: None)
  Receive Date: 20111215
  Receipt Date: 20111130
  Transmission Date: 20120403
  Serious: Yes (Other)
  Sender: FDA-Public Use
  Company Number: NSR_00321_2011

PATIENT
  Age: 67 Year
  Sex: Male

DRUGS (2)
  1. HYDROXYZINE HYDROCHLORIDE [Suspect]
     Indication: PSORIASIS
     Dosage: (DF(
  2. ANTIINFL. PPREP., NON-STEROIDS FOR TOPICAL USE [Concomitant]

REACTIONS (1)
  - ACUTE GENERALISED EXANTHEMATOUS PUSTULOSIS [None]
